FAERS Safety Report 11723686 (Version 3)
Quarter: 2016Q1

REPORT INFORMATION
  Report Type: Spontaneous
  Country: JP (occurrence: JP)
  Receive Date: 20151111
  Receipt Date: 20160201
  Transmission Date: 20160525
  Serious: Yes (Hospitalization, Other)
  Sender: FDA-Public Use
  Company Number: JP-PFIZER INC-2015384793

PATIENT
  Age: 80 Year
  Sex: Male

DRUGS (14)
  1. CELECOX [Suspect]
     Active Substance: CELECOXIB
     Indication: PAIN
     Dosage: 200 MG, 1X/DAY
     Route: 048
     Dates: start: 20151030, end: 20151030
  2. LANSOPRAZOLE. [Concomitant]
     Active Substance: LANSOPRAZOLE
     Dosage: 15 MG, 1X/DAY
     Route: 048
  3. PRAVASTATIN SODIUM. [Concomitant]
     Active Substance: PRAVASTATIN SODIUM
     Dosage: 10 MG, 1X/DAY
     Route: 048
  4. ALLOPURINOL. [Concomitant]
     Active Substance: ALLOPURINOL
     Dosage: 50 MG, 1X/DAY
     Route: 048
  5. MOHRUS [Concomitant]
     Active Substance: KETOPROFEN
     Dosage: UNK
     Route: 061
     Dates: start: 20151030
  6. FRANDOL [Concomitant]
     Active Substance: ISOSORBIDE DINITRATE
     Dosage: 1 DF, 1X/DAY
     Route: 061
  7. MAGMITT [Concomitant]
     Active Substance: MAGNESIUM OXIDE
     Dosage: 330 MG, 3X/DAY
     Route: 048
  8. MOSAPRIDE CITRATE [Concomitant]
     Active Substance: MOSAPRIDE CITRATE
     Dosage: 5 MG, 3X/DAY
     Route: 048
  9. LACTEC G [Concomitant]
     Active Substance: CALCIUM CHLORIDE\POTASSIUM CHLORIDE\SODIUM CHLORIDE\SODIUM LACTATE\SORBITOL
     Dosage: UNK
     Route: 041
     Dates: start: 20151030
  10. BAYASPIRIN [Concomitant]
     Active Substance: ASPIRIN
     Dosage: 100 MG, 2X/DAY
     Route: 048
  11. TEPRENONE [Concomitant]
     Active Substance: TEPRENONE
     Dosage: 0.5 G, 1X/DAY
     Route: 048
  12. PATELL [Concomitant]
     Dosage: 1 DF, 1X/DAY, TAPE
     Route: 061
  13. HICORT [Concomitant]
     Active Substance: BETAMETHASONE SODIUM PHOSPHATE
     Dosage: 2 MG TWICE
     Route: 041
     Dates: start: 20151030
  14. PLETAL [Concomitant]
     Active Substance: CILOSTAZOL
     Dosage: 100 MG, 2X/DAY
     Route: 048

REACTIONS (7)
  - Depressed level of consciousness [Recovered/Resolved]
  - Shock symptom [Recovered/Resolved]
  - Generalised erythema [Recovering/Resolving]
  - Pruritus generalised [Recovering/Resolving]
  - Blood pressure decreased [Recovering/Resolving]
  - Nausea [Recovering/Resolving]
  - Drug eruption [Recovered/Resolved]

NARRATIVE: CASE EVENT DATE: 20151030
